FAERS Safety Report 8976046 (Version 1)
Quarter: 2012Q4

REPORT INFORMATION
  Report Type: Report from Study
  Country: PK (occurrence: PK)
  Receive Date: 20121220
  Receipt Date: 20121220
  Transmission Date: 20130627
  Serious: Yes (Death, Hospitalization, Other)
  Sender: FDA-Public Use
  Company Number: PK-ROCHE-1169750

PATIENT
  Age: 48 Year
  Sex: Female
  Weight: 87 kg

DRUGS (1)
  1. CAPECITABINE [Suspect]
     Indication: BREAST CANCER METASTATIC
     Route: 048
     Dates: start: 20121121

REACTIONS (3)
  - Cardio-respiratory arrest [Fatal]
  - Jaundice [Unknown]
  - Hepatorenal failure [Unknown]
